FAERS Safety Report 19945698 (Version 2)
Quarter: 2022Q4

REPORT INFORMATION
  Report Type: Spontaneous
  Country: DE (occurrence: DE)
  Receive Date: 20211012
  Receipt Date: 20221213
  Transmission Date: 20230113
  Serious: Yes (Hospitalization)
  Sender: FDA-Public Use
  Company Number: DE-ADRED-05815-01

PATIENT
  Age: 68 Year
  Sex: Male
  Weight: 62 kg

DRUGS (13)
  1. FLUOROURACIL [Suspect]
     Active Substance: FLUOROURACIL
     Indication: Product used for unknown indication
     Dosage: ACCORDING TO SCHEME, INJECTION/INFUSION SOLUTION
     Route: 042
  2. OXALIPLATIN [Suspect]
     Active Substance: OXALIPLATIN
     Indication: Product used for unknown indication
     Dosage: ACCORDING TO SCHEME, INJECTION/INFUSION SOLUTION
     Route: 042
  3. IRINOTECAN [Suspect]
     Active Substance: IRINOTECAN
     Indication: Product used for unknown indication
     Dosage: ACCORDING TO SCHEME, INJECTION/INFUSION SOLUTION
     Route: 042
  4. CANDESARTAN CILEXETIL\HYDROCHLOROTHIAZIDE [Concomitant]
     Active Substance: CANDESARTAN CILEXETIL\HYDROCHLOROTHIAZIDE
     Dosage: 16/12.5 MILLIGRAM, 1-0-0-0
     Route: 048
  5. LEUCOVORIN CALCIUM [Concomitant]
     Active Substance: LEUCOVORIN CALCIUM
     Dosage: ACCORDING TO SCHEME, INJECTION/INFUSION SOLUTION
     Route: 042
  6. TOUJEO [Concomitant]
     Active Substance: INSULIN GLARGINE
     Dosage: QD (0-0-0-6, INJECTION/INFUSION SOLUTION)
     Route: 058
  7. LIPEGFILGRASTIM [Concomitant]
     Active Substance: LIPEGFILGRASTIM
     Dosage: ACCORDING TO SCHEME, INJECTION/INFUSION SOLUTION
     Route: 058
  8. LOPERAMIDE HYDROCHLORIDE [Concomitant]
     Active Substance: LOPERAMIDE HYDROCHLORIDE
     Dosage: AS NEEDED
     Route: 048
  9. PANTOPRAZOLE SODIUM [Concomitant]
     Active Substance: PANTOPRAZOLE SODIUM
     Dosage: 40 MG, 1-0-0-0
     Route: 048
  10. NOVORAPID [Concomitant]
     Active Substance: INSULIN ASPART
     Dosage: 1000E, 100E/ML. ACC. TO SCHEME, INJ/INF SOLUTION
     Route: 058
  11. PANCRELIPASE [Concomitant]
     Active Substance: PANCRELIPASE
     Dosage: 25000 IU, 1-1-1-0
     Route: 048
  12. ENOXAPARIN [Concomitant]
     Active Substance: ENOXAPARIN
     Dosage: 0.4ML, QD (0-0-1-0, INJECTION/INFUSION SOLUTION)
     Route: 058
  13. CALCIUM GLUCOHEPTONATE [Concomitant]
     Dosage: 500 MG, 1-1-1-0
     Route: 065

REACTIONS (3)
  - Fatigue [Unknown]
  - Pyrexia [Unknown]
  - Infection [Unknown]
